FAERS Safety Report 4981871-7 (Version None)
Quarter: 2006Q2

REPORT INFORMATION
  Report Type: 
  Country: None (occurrence: None)
  Receive Date: 20060425
  Receipt Date: 20060414
  Transmission Date: 20061013
  Serious: Yes (Other)
  Sender: FDA-Public Use
  Company Number: US-JNJFOC-20060202078

PATIENT
  Sex: Female
  Weight: 70.31 kg

DRUGS (3)
  1. TOPAMAX [Suspect]
     Indication: MIGRAINE
     Route: 048
  2. DEPO-PROVERA SUSPENSION/INJ [Concomitant]
  3. OMEPRAZOLE [Concomitant]

REACTIONS (5)
  - ACIDOSIS [None]
  - BACK PAIN [None]
  - BLOOD BICARBONATE DECREASED [None]
  - CARBON DIOXIDE DECREASED [None]
  - RENAL FAILURE [None]
